FAERS Safety Report 4948885-4 (Version None)
Quarter: 2006Q1

REPORT INFORMATION
  Report Type: 
  Country: None (occurrence: None)
  Receive Date: 20060321
  Receipt Date: 20060222
  Transmission Date: 20060701
  Serious: Yes (Other)
  Sender: FDA-Public Use
  Company Number: US-AMGEN-KDL169948

PATIENT
  Sex: Female

DRUGS (6)
  1. ENBREL [Suspect]
     Indication: RHEUMATOID ARTHRITIS
     Route: 058
     Dates: start: 20010701
  2. METHOTREXATE [Concomitant]
     Dates: start: 20010601
  3. GLUCOTROL [Concomitant]
  4. DIOVAN [Concomitant]
     Dates: start: 20020101
  5. AVANDIA [Concomitant]
  6. GLUCOPHAGE [Concomitant]
     Dates: start: 20011001

REACTIONS (6)
  - BLINDNESS [None]
  - EAR HAEMORRHAGE [None]
  - EPISTAXIS [None]
  - IRRITABLE BOWEL SYNDROME [None]
  - RECTAL HAEMORRHAGE [None]
  - RETINAL VEIN OCCLUSION [None]
